FAERS Safety Report 6046787-6 (Version None)
Quarter: 2009Q1

REPORT INFORMATION
  Report Type: 
  Country: None (occurrence: None)
  Receive Date: 20090122
  Receipt Date: 20090116
  Transmission Date: 20090719
  Serious: Yes (Death)
  Sender: FDA-Public Use
  Company Number: A0713341A

PATIENT
  Age: 67 Year
  Sex: Male
  Weight: 100 kg

DRUGS (9)
  1. AVANDIA [Suspect]
     Dosage: 4MG PER DAY
     Route: 048
     Dates: start: 20030101, end: 20060331
  2. METFORMIN [Concomitant]
     Dates: start: 20020101, end: 20060331
  3. STARLIX [Concomitant]
     Dates: start: 20030101, end: 20030101
  4. HYDROCHLOROTHIAZIDE [Concomitant]
  5. LIPITOR [Concomitant]
  6. PRAVACHOL [Concomitant]
  7. LISINOPRIL [Concomitant]
  8. TRAZODONE HCL [Concomitant]
  9. ASPIRIN [Concomitant]

REACTIONS (2)
  - MYOCARDIAL INFARCTION [None]
  - PAIN [None]
